FAERS Safety Report 6596962-7 (Version None)
Quarter: 2010Q1

REPORT INFORMATION
  Report Type: 
  Country: None (occurrence: None)
  Receive Date: 20100212
  Receipt Date: 20100128
  Transmission Date: 20100710
  Serious: Yes (Hospitalization)
  Sender: FDA-Public Use
  Company Number: 2010000512

PATIENT
  Age: 3 Year
  Sex: Male

DRUGS (1)
  1. AMRIX [Suspect]
     Dosage: ORAL
     Route: 048

REACTIONS (3)
  - LETHARGY [None]
  - VICTIM OF CHILD ABUSE [None]
  - WRONG DRUG ADMINISTERED [None]
